FAERS Safety Report 21590622 (Version 2)
Quarter: 2023Q1

REPORT INFORMATION
  Report Type: Report from Study
  Country: FR (occurrence: FR)
  Receive Date: 20221114
  Receipt Date: 20230105
  Transmission Date: 20230418
  Serious: Yes (Hospitalization)
  Sender: FDA-Public Use
  Company Number: FR-GILEAD-2022-0596498

PATIENT
  Age: 64 Year
  Sex: Male
  Weight: 81 kg

DRUGS (39)
  1. BREXUCABTAGENE AUTOLEUCEL [Suspect]
     Active Substance: BREXUCABTAGENE AUTOLEUCEL
     Indication: Mantle cell lymphoma
     Dosage: 68
     Route: 042
     Dates: start: 20220830, end: 20220830
  2. FLUDARABINE [Suspect]
     Active Substance: FLUDARABINE PHOSPHATE
     Indication: Bone marrow conditioning regimen
     Dosage: 59.4
     Route: 042
     Dates: start: 20220825, end: 20220827
  3. CYCLOPHOSPHAMIDE [Suspect]
     Active Substance: CYCLOPHOSPHAMIDE
     Indication: Bone marrow conditioning regimen
     Dosage: 990
     Route: 042
     Dates: start: 20220825, end: 20220827
  4. MESNA [Suspect]
     Active Substance: MESNA
     Indication: Bone marrow conditioning regimen
     Dosage: 297
     Route: 042
     Dates: start: 20220825, end: 20220828
  5. BACTRIM [Concomitant]
     Active Substance: SULFAMETHOXAZOLE\TRIMETHOPRIM
     Dosage: 800 MG
     Route: 048
  6. VALACYCLOVIR HYDROCHLORIDE [Concomitant]
     Active Substance: VALACYCLOVIR HYDROCHLORIDE
     Dosage: 500 MG, BID
     Route: 048
  7. RAMIPRIL [Concomitant]
     Active Substance: RAMIPRIL
     Dosage: 5 MG, QD
     Route: 048
  8. METHYLPREDNISOLONE [Concomitant]
     Active Substance: METHYLPREDNISOLONE
     Indication: Mantle cell lymphoma
     Dosage: 150
     Route: 065
     Dates: start: 20220726, end: 20220726
  9. ALLOPURINOL [Concomitant]
     Active Substance: ALLOPURINOL
     Dosage: 200,MG,DAILY
     Route: 048
     Dates: start: 20220725, end: 202209
  10. AMLODIPINE BESYLATE [Concomitant]
     Active Substance: AMLODIPINE BESYLATE
     Dosage: 5,MG,DAILY
     Route: 048
     Dates: start: 20220725
  11. FILGRASTIM [Concomitant]
     Active Substance: FILGRASTIM
     Dosage: 3000,IU,DAILY
     Route: 058
     Dates: start: 20220807, end: 20220811
  12. FILGRASTIM [Concomitant]
     Active Substance: FILGRASTIM
     Dosage: 30000,IU,DAILY
     Route: 058
     Dates: start: 20220922, end: 20220924
  13. FILGRASTIM [Concomitant]
     Active Substance: FILGRASTIM
     Dosage: 48000,IU,OTHER
     Route: 058
     Dates: start: 20220924
  14. PANTOPRAZOLE [Concomitant]
     Active Substance: PANTOPRAZOLE
     Dosage: 20,MG,DAILY
     Route: 048
     Dates: start: 20220825
  15. CEFEPIME [Concomitant]
     Active Substance: CEFEPIME HYDROCHLORIDE
     Dosage: 200,MG,THREE TIMES DAILY
     Route: 042
     Dates: start: 20220831, end: 20220905
  16. ERYTHROPOIETIN [Concomitant]
     Active Substance: ERYTHROPOIETIN
     Dosage: 30000,IU,OTHER
     Route: 058
     Dates: start: 202209
  17. INSULIN NOS [Concomitant]
     Active Substance: INSULIN NOS
     Dosage: UNK,OTHER,OTHER
     Route: 058
     Dates: start: 202209, end: 202209
  18. TOCILIZUMAB [Concomitant]
     Active Substance: TOCILIZUMAB
     Dosage: 680,MG,DAILY
     Route: 042
     Dates: start: 20220903, end: 20220905
  19. LINEZOLID [Concomitant]
     Active Substance: LINEZOLID
     Dosage: 600,MG,DAILY
     Route: 042
     Dates: start: 20220904, end: 20220910
  20. DEXAMETHASONE [Concomitant]
     Active Substance: DEXAMETHASONE
     Dosage: 10,MG,DAILY
     Route: 042
     Dates: start: 20220905, end: 20220905
  21. DEXAMETHASONE [Concomitant]
     Active Substance: DEXAMETHASONE
     Dosage: 20,MG,FOUR TIMES DAILY
     Route: 042
     Dates: start: 20220907, end: 20220909
  22. DEXAMETHASONE [Concomitant]
     Active Substance: DEXAMETHASONE
     Dosage: 15,MG,FOUR TIMES DAILY
     Route: 042
     Dates: start: 20220909, end: 20220910
  23. DEXAMETHASONE [Concomitant]
     Active Substance: DEXAMETHASONE
     Dosage: 10,MG,FOUR TIMES DAILY
     Route: 042
     Dates: start: 20220910, end: 20220911
  24. DEXAMETHASONE [Concomitant]
     Active Substance: DEXAMETHASONE
     Dosage: 20,MG,FOUR TIMES DAILY
     Route: 042
     Dates: start: 20220912, end: 20220914
  25. DEXAMETHASONE [Concomitant]
     Active Substance: DEXAMETHASONE
     Dosage: 10,MG,FOUR TIMES DAILY
     Route: 042
     Dates: start: 20220914, end: 20220916
  26. DEXAMETHASONE [Concomitant]
     Active Substance: DEXAMETHASONE
     Dosage: 10,MG,THREE TIMES DAILY
     Route: 042
     Dates: start: 20220916, end: 20220918
  27. DEXAMETHASONE [Concomitant]
     Active Substance: DEXAMETHASONE
     Dosage: 10,MG,TWICE DAILY
     Route: 042
     Dates: start: 20220918, end: 20220919
  28. DEXAMETHASONE [Concomitant]
     Active Substance: DEXAMETHASONE
     Dosage: 10,MG,DAILY
     Route: 042
     Dates: start: 20220919, end: 20220921
  29. EPINEPHRINE [Concomitant]
     Active Substance: EPINEPHRINE
     Dosage: UNK,OTHER,OTHER
     Route: 050
     Dates: start: 20220905, end: 20220907
  30. PULMICORT TURBUHALER [Concomitant]
     Active Substance: BUDESONIDE
     Dosage: UNKNOWN,OTHER,OTHER
     Route: 050
     Dates: start: 20220905, end: 20220907
  31. MEROPENEM [Concomitant]
     Active Substance: MEROPENEM
     Dosage: 2000,MG,THREE TIMES DAILY
     Route: 042
     Dates: start: 20220905, end: 20220910
  32. BUDESONIDE [Concomitant]
     Active Substance: BUDESONIDE
     Dosage: 1,MG,TWICE DAILY
     Route: 055
     Dates: start: 20220907, end: 20220915
  33. KEPPRA [Concomitant]
     Active Substance: LEVETIRACETAM
     Dosage: 500,MG,TWICE DAILY
     Route: 048
     Dates: start: 20220909, end: 20220912
  34. KEPPRA [Concomitant]
     Active Substance: LEVETIRACETAM
     Dosage: 1000,MG,TWICE DAILY
     Route: 048
     Dates: start: 20220912, end: 20220920
  35. KEPPRA [Concomitant]
     Active Substance: LEVETIRACETAM
     Dosage: 750,MG,TWICE DAILY
     Route: 048
     Dates: start: 20220920, end: 20220929
  36. KEPPRA [Concomitant]
     Active Substance: LEVETIRACETAM
     Dosage: 500,MG,TWICE DAILY
     Route: 048
     Dates: start: 20220929, end: 20221006
  37. LEUCOVORIN CALCIUM [Concomitant]
     Active Substance: LEUCOVORIN CALCIUM
     Dosage: 25,MG,OTHER
     Route: 048
     Dates: start: 20220911
  38. ANAKINRA [Concomitant]
     Active Substance: ANAKINRA
     Dosage: 200,MG,TWICE DAILY
     Route: 058
     Dates: start: 20220912, end: 20220921
  39. ANAKINRA [Concomitant]
     Active Substance: ANAKINRA
     Dosage: 100,MG,TWICE DAILY
     Route: 058
     Dates: start: 20220921, end: 20220922

REACTIONS (1)
  - Dyspnoea [Recovered/Resolved]

NARRATIVE: CASE EVENT DATE: 20220905
